FAERS Safety Report 19857256 (Version 1)
Quarter: 2021Q3

REPORT INFORMATION
  Report Type: Report from Study
  Country: None (occurrence: US)
  Receive Date: 20210921
  Receipt Date: 20210921
  Transmission Date: 20211014
  Serious: Yes (Death)
  Sender: FDA-Public Use
  Company Number: US-ABBVIE-21K-163-4085414-00

PATIENT
  Sex: Male

DRUGS (1)
  1. CREON [Suspect]
     Active Substance: PANCRELIPASE AMYLASE\PANCRELIPASE LIPASE\PANCRELIPASE PROTEASE
     Indication: DIARRHOEA
     Dosage: TWO CAPSULES PER MEAL, ONE CAPSULE PER SNACK
     Route: 048
     Dates: start: 202106

REACTIONS (4)
  - Chronic obstructive pulmonary disease [Fatal]
  - Hypoxia [Fatal]
  - Drug ineffective [Unknown]
  - Colitis [Fatal]

NARRATIVE: CASE EVENT DATE: 2021
